FAERS Safety Report 17117315 (Version 3)
Quarter: 2020Q2

REPORT INFORMATION
  Report Type: Report from Study
  Country: None (occurrence: US)
  Receive Date: 20191205
  Receipt Date: 20200416
  Transmission Date: 20200713
  Serious: Yes (Death)
  Sender: FDA-Public Use
  Company Number: US-ABBVIE-19K-163-3182413-00

PATIENT
  Age: 65 Year
  Sex: Male

DRUGS (1)
  1. VENCLEXTA [Suspect]
     Active Substance: VENETOCLAX
     Indication: ACUTE MYELOID LEUKAEMIA
     Route: 048
     Dates: start: 20191022, end: 2019

REACTIONS (5)
  - Leukaemia [Fatal]
  - Dyspnoea [Fatal]
  - Pyrexia [Fatal]
  - Cardiac disorder [Fatal]
  - Weight decreased [Fatal]

NARRATIVE: CASE EVENT DATE: 2019
